FAERS Safety Report 8384060-1 (Version None)
Quarter: 2012Q2

REPORT INFORMATION
  Report Type: 
  Country: None (occurrence: None)
  Receive Date: 20120524
  Receipt Date: 20120202
  Transmission Date: 20120825
  Serious: Yes (Hospitalization)
  Sender: FDA-Public Use
  Company Number: CHPA2011US018260

PATIENT
  Age: 31 Year
  Sex: Female

DRUGS (2)
  1. THERAFLU DAYTIME SEVERE COLD + COUGH [Suspect]
     Indication: COUGH
     Dosage: 1 DF, BID
     Route: 048
     Dates: start: 20111121, end: 20111205
  2. THERAFLU NIGHTTIME SEVERE COLD + COUGH [Suspect]
     Indication: COUGH
     Dosage: 1 DF, BID
     Route: 048
     Dates: start: 20111121, end: 20111205

REACTIONS (1)
  - URTICARIA [None]
